FAERS Safety Report 4486742-0 (Version None)
Quarter: 2004Q4

REPORT INFORMATION
  Report Type: 
  Country: None (occurrence: None)
  Receive Date: 20041021
  Receipt Date: 20041012
  Transmission Date: 20050328
  Serious: Yes (Hospitalization)
  Sender: FDA-Public Use
  Company Number: 2004077834

PATIENT
  Age: 36 Year
  Sex: Female

DRUGS (3)
  1. EPANUTIN INJECTABLE (PHENYTOIN SODIUM) [Suspect]
     Indication: CONVULSION
     Dosage: 750 MG (750 MG, 1 IN 1
  2. VALPROATE SODIUM [Concomitant]
  3. CARBAMAZEPINE [Concomitant]

REACTIONS (2)
  - CEREBROVASCULAR ACCIDENT [None]
  - NERVOUS SYSTEM DISORDER [None]
